FAERS Safety Report 8051974-1 (Version None)
Quarter: 2012Q1

REPORT INFORMATION
  Report Type: 
  Country: None (occurrence: None)
  Receive Date: 20120118
  Receipt Date: 20120112
  Transmission Date: 20120608
  Serious: Yes (Hospitalization, Other)
  Sender: FDA-Public Use
  Company Number: US-JNJFOC-20110404818

PATIENT
  Sex: Male
  Weight: 106.6 kg

DRUGS (13)
  1. RISPERDAL CONSTA [Suspect]
     Indication: PSYCHOTIC DISORDER
     Route: 030
     Dates: start: 20041001
  2. VOLTAREN [Concomitant]
     Indication: MUSCULOSKELETAL PAIN
     Route: 048
     Dates: start: 20120101
  3. ASPIRIN [Concomitant]
     Indication: ANTICOAGULANT THERAPY
     Route: 048
     Dates: start: 20010101
  4. FISH OIL [Concomitant]
     Indication: BLOOD CHOLESTEROL DECREASED
     Route: 048
     Dates: start: 20010101
  5. RISPERDAL [Suspect]
     Indication: PSYCHOTIC DISORDER
     Route: 048
     Dates: start: 19940101, end: 20041001
  6. LOPRESSOR [Concomitant]
     Indication: ANGINA PECTORIS
     Route: 048
     Dates: start: 20060101
  7. HALDOL [Concomitant]
     Indication: SCHIZOPHRENIA
     Route: 065
  8. VITAMIN D [Concomitant]
     Indication: VITAMIN SUPPLEMENTATION
     Route: 048
     Dates: start: 20110701
  9. ASPIRIN [Concomitant]
     Indication: ISCHAEMIC HEART DISEASE PROPHYLAXIS
     Route: 048
     Dates: start: 20010101
  10. ACETAMINOPHEN [Concomitant]
     Indication: PAIN
     Route: 048
     Dates: start: 19930101
  11. RISPERDAL CONSTA [Suspect]
     Indication: SCHIZOPHRENIA
     Route: 030
     Dates: start: 20041001
  12. FISH OIL [Concomitant]
     Indication: MEDICAL DIET
     Route: 048
     Dates: start: 20010101
  13. ATIVAN [Concomitant]
     Indication: ANXIETY
     Route: 048
     Dates: start: 20110601

REACTIONS (15)
  - DYSPNOEA [None]
  - PAIN IN EXTREMITY [None]
  - WEIGHT INCREASED [None]
  - ANXIETY [None]
  - PANIC DISORDER [None]
  - BURNING SENSATION [None]
  - BLOOD GLUCOSE DECREASED [None]
  - HALLUCINATION, VISUAL [None]
  - HOSPITALISATION [None]
  - ANGINA PECTORIS [None]
  - HALLUCINATION, TACTILE [None]
  - HALLUCINATION, AUDITORY [None]
  - GASTROOESOPHAGEAL REFLUX DISEASE [None]
  - BLOOD TEST ABNORMAL [None]
  - HYPOAESTHESIA [None]
